FAERS Safety Report 13151951 (Version 3)
Quarter: 2017Q1

REPORT INFORMATION
  Report Type: Report from Study
  Country: FR (occurrence: FR)
  Receive Date: 20170125
  Receipt Date: 20170213
  Transmission Date: 20170428
  Serious: Yes (Death, Hospitalization)
  Sender: FDA-Public Use
  Company Number: FR-INCYTE CORPORATION-2017IN000511

PATIENT
  Age: 66 Year
  Sex: Female

DRUGS (1)
  1. JAKAVI [Suspect]
     Active Substance: RUXOLITINIB
     Indication: PRIMARY MYELOFIBROSIS
     Dosage: 15 MG, BID
     Route: 065
     Dates: start: 20110707, end: 20161027

REACTIONS (6)
  - Concomitant disease aggravated [Unknown]
  - Liver disorder [Unknown]
  - Disseminated intravascular coagulation [Fatal]
  - Venoocclusive disease [Not Recovered/Not Resolved]
  - Sepsis [Fatal]
  - Shock haemorrhagic [Fatal]

NARRATIVE: CASE EVENT DATE: 20160926
